FAERS Safety Report 13039294 (Version 1)
Quarter: 2016Q4

REPORT INFORMATION
  Report Type: Spontaneous
  Country: US (occurrence: US)
  Receive Date: 20161216
  Receipt Date: 20161216
  Transmission Date: 20170207
  Serious: Yes (Hospitalization)
  Sender: FDA-Public Use
  Company Number: None

PATIENT
  Age: 55 Year
  Sex: Female
  Weight: 91.4 kg

DRUGS (2)
  1. CISPLATIN. [Suspect]
     Active Substance: CISPLATIN
     Dates: end: 20161114
  2. ETOPOSIDE (VP-16) [Suspect]
     Active Substance: ETOPOSIDE
     Dates: end: 20161116

REACTIONS (6)
  - Febrile neutropenia [None]
  - Anaemia [None]
  - Non-cardiac chest pain [None]
  - Cough [None]
  - Platelet count decreased [None]
  - Urinary tract infection [None]

NARRATIVE: CASE EVENT DATE: 20161125
